FAERS Safety Report 6914907-4 (Version None)
Quarter: 2010Q3

REPORT INFORMATION
  Report Type: 
  Country: None (occurrence: None)
  Receive Date: 20100809
  Receipt Date: 20100727
  Transmission Date: 20110219
  Serious: Yes (Other)
  Sender: FDA-Public Use
  Company Number: PHHY2010US45807

PATIENT
  Sex: Female

DRUGS (2)
  1. ZOMETA [Suspect]
     Indication: METASTASES TO BONE
     Dosage: 4 MG, QMO
     Route: 042
     Dates: start: 20090119, end: 20100503
  2. ZOMETA [Suspect]
     Dosage: 4 MG MONTHLY
     Route: 042
     Dates: end: 20100614

REACTIONS (8)
  - BONE DISORDER [None]
  - BONE LESION [None]
  - GINGIVAL INFECTION [None]
  - ORAL PAIN [None]
  - OSTEOMYELITIS [None]
  - OSTEONECROSIS OF JAW [None]
  - PURULENT DISCHARGE [None]
  - TOOTH DISORDER [None]
